FAERS Safety Report 7207914-8 (Version None)
Quarter: 2011Q1

REPORT INFORMATION
  Report Type: 
  Country: None (occurrence: None)
  Receive Date: 20110104
  Receipt Date: 20101225
  Transmission Date: 20110831
  Serious: Yes (Hospitalization)
  Sender: FDA-Public Use
  Company Number: IR-MPIJNJ-2010-06369

PATIENT

DRUGS (4)
  1. CLONAZEPAM [Concomitant]
     Indication: DEPRESSION
     Dosage: 1 MG, UNK
  2. IMIPRAMINE [Concomitant]
     Indication: DEPRESSION
     Dosage: 10 MG, UNK
  3. VELCADE [Suspect]
     Indication: MULTIPLE MYELOMA
     Dosage: 1.3 MG/M2, CYCLIC
     Route: 042
     Dates: end: 20101208
  4. PROPRANOLOL [Concomitant]
     Dosage: 20 MG, UNK

REACTIONS (5)
  - HYPOTONIA [None]
  - ABASIA [None]
  - HEAD INJURY [None]
  - ASTHENIA [None]
  - FATIGUE [None]
